FAERS Safety Report 8988593 (Version 3)
Quarter: 2013Q2

REPORT INFORMATION
  Report Type: Spontaneous
  Country: ES (occurrence: None)
  Receive Date: 20121218
  Receipt Date: 20130507
  Transmission Date: 20140414
  Serious: Yes (Life-Threatening, Hospitalization)
  Sender: FDA-Public Use
  Company Number: AUR-APL-2012-05340

PATIENT
  Age: 66 Year
  Sex: Male

DRUGS (12)
  1. TORASEMIDE [Suspect]
     Indication: PRODUCT USED FOR UNKNOWN INDICATION
     Dosage: TOTAL
     Dates: start: 20121105
  2. PANTOPRAZOLE [Suspect]
     Indication: PRODUCT USED FOR UNKNOWN INDICATION
     Dosage: TOTAL
     Dates: start: 20121105
  3. BISOPROLOL [Suspect]
     Indication: PRODUCT USED FOR UNKNOWN INDICATION
     Dosage: TOTAL
     Dates: start: 20121105
  4. LIBERTEK [Suspect]
     Indication: CHRONIC OBSTRUCTIVE PULMONARY DISEASE
  5. TRANXILIUM [Suspect]
     Indication: PRODUCT USED FOR UNKNOWN INDICATION
     Dosage: TOTAL
     Dates: start: 20121105
  6. ADIRO [Suspect]
     Indication: PRODUCT USED FOR UNKNOWN INDICATION
     Dosage: TOTAL
     Dates: start: 20121105
  7. NOLOTIL /SPA/ [Suspect]
     Indication: PRODUCT USED FOR UNKNOWN INDICATION
     Dosage: 6 OR 7 CAPSULES TOTAL
     Dates: start: 20121105
  8. ATORVASTATIN (ATORVASTATIN) [Suspect]
     Indication: PRODUCT USED FOR UNKNOWN INDICATION
     Dosage: TOTAL
     Dates: start: 20121105
  9. CILOSTAZOL [Suspect]
     Indication: PRODUCT USED FOR UNKNOWN INDICATION
     Dosage: TOTAL
     Dates: start: 20121105
  10. ATROVENT (IPRATROPIUM BROMIDE) [Concomitant]
  11. PLUSVENT (SERETIDE /01420901/) [Concomitant]
  12. SALBUTAMOL (SALBUTAMOL) [Concomitant]

REACTIONS (4)
  - Drug administration error [None]
  - Treatment noncompliance [None]
  - Incorrect dose administered [None]
  - Completed suicide [None]
